FAERS Safety Report 7346661-9 (Version None)
Quarter: 2011Q1

REPORT INFORMATION
  Report Type: 
  Country: None (occurrence: None)
  Receive Date: 20110311
  Receipt Date: 20110302
  Transmission Date: 20110831
  Serious: Yes (Other)
  Sender: FDA-Public Use
  Company Number: GR-JNJFOC-20110300930

PATIENT
  Age: 30 Year
  Sex: Female

DRUGS (2)
  1. TOPAMAC [Suspect]
     Indication: DRUG THERAPY
     Route: 048
  2. TOPAMAC [Suspect]
     Route: 048

REACTIONS (3)
  - MYOPIA [None]
  - OFF LABEL USE [None]
  - VISION BLURRED [None]
